FAERS Safety Report 10818589 (Version 1)
Quarter: 2015Q1

REPORT INFORMATION
  Report Type: Report from Study
  Country: US (occurrence: None)
  Receive Date: 20150213
  Receipt Date: 20150213
  Transmission Date: 20150721
  Serious: Yes (Hospitalization, Other)
  Sender: FDA-Public Use
  Company Number: 2015BI009465

PATIENT
  Age: 36 Year
  Sex: Female

DRUGS (1)
  1. TYSABRI [Suspect]
     Active Substance: NATALIZUMAB
     Indication: MULTIPLE SCLEROSIS
     Route: 042
     Dates: start: 20140321, end: 20141031

REACTIONS (5)
  - Musculoskeletal disorder [None]
  - Abnormal loss of weight [None]
  - Migraine [None]
  - Breast cancer [None]
  - Pain [None]

NARRATIVE: CASE EVENT DATE: 201412
